FAERS Safety Report 16421887 (Version 1)
Quarter: 2019Q2

REPORT INFORMATION
  Report Type: Spontaneous
  Country: US (occurrence: US)
  Receive Date: 20190612
  Receipt Date: 20190612
  Transmission Date: 20190711
  Serious: No
  Sender: FDA-Public Use
  Company Number: US-MYLANLABS-2019M1047970

PATIENT
  Age: 94 Year
  Sex: Female

DRUGS (1)
  1. CLOBETASOL PROPIONATE FOAM [Suspect]
     Active Substance: CLOBETASOL PROPIONATE
     Indication: PRODUCT USED FOR UNKNOWN INDICATION
     Dosage: UNK
     Route: 003
     Dates: start: 20190510

REACTIONS (5)
  - Product container issue [Unknown]
  - Therapy cessation [Unknown]
  - Product dose omission [Not Recovered/Not Resolved]
  - Product physical consistency issue [Unknown]
  - Pruritus [Not Recovered/Not Resolved]

NARRATIVE: CASE EVENT DATE: 20190513
